FAERS Safety Report 7368148-X (Version None)
Quarter: 2011Q1

REPORT INFORMATION
  Report Type: 
  Country: None (occurrence: None)
  Receive Date: 20110323
  Receipt Date: 20110317
  Transmission Date: 20110831
  Serious: Yes (Hospitalization)
  Sender: FDA-Public Use
  Company Number: US-PFIZER INC-2011059392

PATIENT
  Sex: Male
  Weight: 122 kg

DRUGS (6)
  1. NAPROXEN [Concomitant]
     Dosage: UNK
  2. ACETYLSALICYLIC ACID [Concomitant]
     Dosage: UNK
  3. PRILOSEC [Concomitant]
     Dosage: UNK
  4. OMEPRAZOLE [Concomitant]
     Dosage: UNK
  5. AZITHROMYCIN [Suspect]
     Indication: VIRAL INFECTION
     Dosage: 250 MG
     Dates: end: 20110101
  6. LOTREL [Concomitant]
     Dosage: UNK

REACTIONS (1)
  - HYPONATRAEMIA [None]
